FAERS Safety Report 8587579-3 (Version None)
Quarter: 2012Q3

REPORT INFORMATION
  Report Type: 
  Country: None (occurrence: None)
  Receive Date: 20120810
  Receipt Date: 20120319
  Transmission Date: 20120928
  Serious: Yes (Other)
  Sender: FDA-Public Use
  Company Number: PHFR2011GB007224

PATIENT
  Sex: Female

DRUGS (3)
  1. CLOZARIL [Suspect]
     Dosage: 125 MG, BID
     Route: 048
     Dates: start: 20111101
  2. LORAZEPAM [Concomitant]
     Indication: ANXIETY
     Dosage: 1 MG, DAILY
     Route: 048
     Dates: start: 20111201
  3. CLOZARIL [Suspect]
     Indication: SCHIZOPHRENIA
     Dates: start: 20111204

REACTIONS (2)
  - HYPOPHAGIA [None]
  - MALAISE [None]
